FAERS Safety Report 6084088-0 (Version None)
Quarter: 2009Q1

REPORT INFORMATION
  Report Type: 
  Country: None (occurrence: None)
  Receive Date: 20090217
  Receipt Date: 20090217
  Transmission Date: 20090719
  Serious: Yes (Death, Life-Threatening, Hospitalization)
  Sender: FDA-Public Use
  Company Number: None

PATIENT
  Age: 52 Year
  Sex: Male
  Weight: 122 kg

DRUGS (15)
  1. PROPOFOL [Suspect]
     Indication: MECHANICAL VENTILATION
     Dosage: TITRATE CONTINOUS IV DRIP
     Route: 041
     Dates: start: 20090201, end: 20090207
  2. PROPOFOL [Suspect]
     Indication: SEDATION
     Dosage: TITRATE CONTINOUS IV DRIP
     Route: 041
     Dates: start: 20090201, end: 20090207
  3. AMIODARONE [Concomitant]
  4. CALCIUM GLUCONATE [Concomitant]
  5. FENTANYL [Concomitant]
  6. HEPARIN [Concomitant]
  7. HYDROOMORPHONE [Concomitant]
  8. INSULIN [Concomitant]
  9. LEVAQUIN [Concomitant]
  10. MAGNESIUM SULFATE [Concomitant]
  11. METRONIDAZOLE HCL [Concomitant]
  12. MORPHONE [Concomitant]
  13. NOREPINEPHRINE [Concomitant]
  14. PANTOPRAZOLE [Concomitant]
  15. PHENYLEPHRINE [Concomitant]

REACTIONS (2)
  - MULTI-ORGAN FAILURE [None]
  - PROPOFOL INFUSION SYNDROME [None]
